FAERS Safety Report 15098262 (Version 2)
Quarter: 2019Q2

REPORT INFORMATION
  Report Type: Spontaneous
  Country: US (occurrence: US)
  Receive Date: 20180702
  Receipt Date: 20190419
  Transmission Date: 20190711
  Serious: Yes (Death, Other)
  Sender: FDA-Public Use
  Company Number: US-PFIZER INC-2018225407

PATIENT
  Age: 76 Year
  Sex: Male
  Weight: 53.52 kg

DRUGS (5)
  1. JEVTANA [Concomitant]
     Active Substance: CABAZITAXEL
     Dosage: UNK
  2. ZOMETA [Concomitant]
     Active Substance: ZOLEDRONIC ACID
     Indication: BONE DISORDER
     Dosage: UNK
  3. IBRANCE [Suspect]
     Active Substance: PALBOCICLIB
     Indication: PROSTATE CANCER
     Dosage: 75 MG, ONCE EVERY MORNING WITH BREAKFAST
     Route: 048
     Dates: start: 20180618
  4. NEULASTA [Concomitant]
     Active Substance: PEGFILGRASTIM
     Dosage: UNK
  5. TAXOTERE [Concomitant]
     Active Substance: DOCETAXEL
     Dosage: UNK

REACTIONS (3)
  - Product use in unapproved indication [Unknown]
  - Osteonecrosis of jaw [Unknown]
  - Death [Fatal]

NARRATIVE: CASE EVENT DATE: 20180618
